FAERS Safety Report 7702349-3 (Version None)
Quarter: 2011Q3

REPORT INFORMATION
  Report Type: 
  Country: None (occurrence: None)
  Receive Date: 20110822
  Receipt Date: 20110816
  Transmission Date: 20111222
  Serious: Yes (Other)
  Sender: FDA-Public Use
  Company Number: GXKR2011DE02440

PATIENT
  Sex: Male
  Weight: 53.8 kg

DRUGS (9)
  1. NEBIVOLOL HCL [Concomitant]
     Dosage: 5 MG, QD
  2. TORSEMIDE [Concomitant]
     Dosage: 5 MG, QD
  3. MIRTAZAPINE [Suspect]
     Indication: MOOD ALTERED
     Dosage: 15 MG, QD
     Route: 048
     Dates: start: 20110723, end: 20110725
  4. MAGNOSOL (MAG CARBONATE/MAG OXIDE) [Concomitant]
     Dosage: 1 DF, QD
  5. PANTOPRAZOLE [Concomitant]
     Dosage: 40 MG, BID
  6. CLOPIDOGREL BISULFATE [Concomitant]
     Dosage: 75 MG, QD
  7. CREON [Concomitant]
     Dosage: 40000 IU, BID
  8. CALCIUM CARBONATE W/COLECALCIFEROL [Concomitant]
     Dosage: 1 DF, BID
  9. FORTIMEL [Concomitant]
     Dosage: 60 ML, QID

REACTIONS (4)
  - THROMBOCYTOPENIA [None]
  - DIARRHOEA [None]
  - RENAL FAILURE ACUTE [None]
  - CUTANEOUS VASCULITIS [None]
